FAERS Safety Report 9638857 (Version 3)
Quarter: 2014Q2

REPORT INFORMATION
  Report Type: Spontaneous
  Country: US (occurrence: US)
  Receive Date: 20131022
  Receipt Date: 20140424
  Transmission Date: 20141212
  Serious: Yes (Other)
  Sender: FDA-Public Use
  Company Number: US-BRISTOL-MYERS SQUIBB COMPANY-19140458

PATIENT
  Age: 79 Year
  Sex: Female

DRUGS (10)
  1. ELIQUIS [Suspect]
     Indication: ATRIAL FIBRILLATION
     Dosage: TABS
     Route: 048
     Dates: start: 20130628, end: 20130705
  2. ASPIRIN [Suspect]
  3. COZAAR [Concomitant]
  4. WELCHOL [Concomitant]
  5. CARDIZEM [Concomitant]
  6. METOPROLOL [Concomitant]
  7. PEPCID [Concomitant]
  8. ADVAIR [Concomitant]
  9. ALBUTEROL INHALER [Concomitant]
  10. SYNTHROID [Concomitant]

REACTIONS (2)
  - Subcutaneous haematoma [Recovered/Resolved]
  - Dizziness [Unknown]
